FAERS Safety Report 9983478 (Version 2)
Quarter: 2014Q2

REPORT INFORMATION
  Report Type: Spontaneous
  Country: US (occurrence: US)
  Receive Date: 20140307
  Receipt Date: 20140410
  Transmission Date: 20141212
  Serious: Yes (Hospitalization)
  Sender: FDA-Public Use
  Company Number: US-SA-2014SA028662

PATIENT
  Age: 75 Year
  Sex: Male

DRUGS (1)
  1. LANTUS [Suspect]
     Indication: TYPE 2 DIABETES MELLITUS
     Dosage: DOSAGE- 20-25 OR 30 U?FREQUENCY- ONCE A DAY
     Route: 051
     Dates: start: 200909

REACTIONS (6)
  - Prostatic disorder [Unknown]
  - Dysuria [Unknown]
  - Blood glucose increased [Unknown]
  - Tremor [Unknown]
  - Drug dose omission [Unknown]
  - Drug ineffective [Unknown]
